FAERS Safety Report 8739470 (Version 2)
Quarter: 2012Q4

REPORT INFORMATION
  Report Type: 
  Country: US (occurrence: US)
  Receive Date: 20120823
  Receipt Date: 20120912
  Transmission Date: 20130627
  Serious: Yes (Other)
  Sender: FDA-Public Use
  Company Number: US-JNJFOC-20120808991

PATIENT
  Age: 81 Year
  Sex: Female
  Weight: 71.67 kg

DRUGS (17)
  1. BENADRYL ALLERGY KAPGELS [Suspect]
     Indication: SLEEP DISORDER THERAPY
     Route: 065
  2. BENADRYL ALLERGY KAPGELS [Suspect]
     Indication: PRURITUS
     Route: 065
  3. BENADRYL ALLERGY KAPGELS [Suspect]
     Indication: ARTHROPOD BITE
     Route: 065
  4. BENADRYL TOPICAL EXTRA STRENGTH [Suspect]
     Indication: ARTHROPOD BITE
     Route: 061
     Dates: start: 20120811
  5. CALCIUM [Concomitant]
     Indication: PRODUCT USED FOR UNKNOWN INDICATION
     Route: 065
  6. ATENOLOL [Concomitant]
     Indication: PRODUCT USED FOR UNKNOWN INDICATION
     Route: 065
  7. LISINOPRIL [Concomitant]
     Indication: PRODUCT USED FOR UNKNOWN INDICATION
     Route: 065
  8. LIPITOR [Concomitant]
     Indication: LIPIDS
     Route: 065
     Dates: start: 2008
  9. VITAMIN D [Concomitant]
     Indication: PRODUCT USED FOR UNKNOWN INDICATION
     Route: 065
  10. VITAMIN C [Concomitant]
     Indication: PRODUCT USED FOR UNKNOWN INDICATION
     Route: 065
  11. AN UNKNOWN MEDICATION [Concomitant]
     Indication: PRODUCT USED FOR UNKNOWN INDICATION
     Route: 065
  12. MULTIVITAMINS [Concomitant]
     Indication: PRODUCT USED FOR UNKNOWN INDICATION
     Route: 065
  13. MELATONIN [Concomitant]
     Indication: PRODUCT USED FOR UNKNOWN INDICATION
     Route: 065
  14. ASPIRIN [Concomitant]
     Indication: PRODUCT USED FOR UNKNOWN INDICATION
     Route: 065
  15. ANASTROZOLE [Concomitant]
     Indication: BREAST CANCER
     Route: 065
  16. IRON [Concomitant]
     Indication: PRODUCT USED FOR UNKNOWN INDICATION
     Route: 065
  17. GLUCOSAMINE [Concomitant]
     Indication: PRODUCT USED FOR UNKNOWN INDICATION
     Route: 065

REACTIONS (7)
  - Breast cancer [Recovered/Resolved]
  - Anaemia [Recovered/Resolved]
  - Swelling [Recovered/Resolved]
  - Pruritus [Recovered/Resolved]
  - Fatigue [Unknown]
  - Off label use [Unknown]
  - Breast cancer female [None]
